FAERS Safety Report 7713030-9 (Version None)
Quarter: 2011Q3

REPORT INFORMATION
  Report Type: 
  Country: None (occurrence: None)
  Receive Date: 20110826
  Receipt Date: 20110818
  Transmission Date: 20111222
  Serious: Yes (Hospitalization)
  Sender: FDA-Public Use
  Company Number: IT-TEVA-297467ISR

PATIENT
  Sex: Male

DRUGS (2)
  1. SIMVASTATIN [Concomitant]
     Route: 048
  2. DICLOFENAC SODIUM [Suspect]
     Route: 048
     Dates: start: 20110612, end: 20110616

REACTIONS (1)
  - HAEMOPTYSIS [None]
